FAERS Safety Report 5156759-1 (Version None)
Quarter: 2006Q4

REPORT INFORMATION
  Report Type: 
  Country: None (occurrence: None)
  Receive Date: 20061122
  Receipt Date: 20060623
  Transmission Date: 20070319
  Serious: Yes (Hospitalization)
  Sender: FDA-Public Use
  Company Number: US-MERCK-0606USA04781

PATIENT
  Age: 77 Year
  Sex: Male

DRUGS (18)
  1. ZETIA [Suspect]
     Indication: BLOOD CHOLESTEROL INCREASED
     Route: 048
     Dates: start: 20021201, end: 20051201
  2. NAMENDA [Suspect]
     Indication: COGNITIVE DISORDER
     Route: 048
     Dates: start: 20030101, end: 20030101
  3. NAMENDA [Suspect]
     Route: 048
     Dates: start: 20030101, end: 20030101
  4. NAMENDA [Suspect]
     Route: 048
     Dates: start: 20030101, end: 20030101
  5. NAMENDA [Suspect]
     Route: 048
     Dates: start: 20030101, end: 20060413
  6. NAMENDA [Suspect]
     Route: 048
  7. NAMENDA [Suspect]
     Indication: CONFUSIONAL STATE
     Route: 048
     Dates: start: 20030101, end: 20030101
  8. NAMENDA [Suspect]
     Route: 048
     Dates: start: 20030101, end: 20030101
  9. NAMENDA [Suspect]
     Route: 048
     Dates: start: 20030101, end: 20030101
  10. NAMENDA [Suspect]
     Route: 048
     Dates: start: 20030101, end: 20060413
  11. NAMENDA [Suspect]
     Route: 048
  12. GLYBURIDE [Concomitant]
     Route: 065
  13. LUPRON [Concomitant]
     Route: 065
  14. FOSAMAX [Concomitant]
     Route: 065
  15. ASPIRIN [Concomitant]
     Route: 065
  16. HERBS (UNSPECIFIED) [Concomitant]
     Route: 065
  17. MULTI-VITAMINS [Concomitant]
     Route: 065
  18. DOCUSATE SODIUM [Concomitant]
     Route: 065

REACTIONS (20)
  - ASTHENIA [None]
  - ATRIAL FIBRILLATION [None]
  - COGNITIVE DISORDER [None]
  - CONFUSIONAL STATE [None]
  - DRUG INTOLERANCE [None]
  - DYSARTHRIA [None]
  - FALL [None]
  - FATIGUE [None]
  - GAIT DISTURBANCE [None]
  - HEART RATE INCREASED [None]
  - HEART RATE IRREGULAR [None]
  - HIP FRACTURE [None]
  - INJURY [None]
  - MEMORY IMPAIRMENT [None]
  - MUSCULAR WEAKNESS [None]
  - RIB FRACTURE [None]
  - SOMNOLENCE [None]
  - UPPER LIMB FRACTURE [None]
  - URINARY TRACT INFECTION [None]
  - WALKING DISABILITY [None]
